FAERS Safety Report 9908217 (Version 5)
Quarter: 2014Q1

REPORT INFORMATION
  Report Type: Report from Study
  Country: CA (occurrence: CA)
  Receive Date: 20140219
  Receipt Date: 20140326
  Transmission Date: 20141002
  Serious: Yes (Life-Threatening, Other)
  Sender: FDA-Public Use
  Company Number: CA-ROCHE-1306097

PATIENT
  Age: 48 Year
  Sex: Female
  Weight: 86.2 kg

DRUGS (7)
  1. AVASTIN [Suspect]
     Indication: GLIOBLASTOMA
     Route: 042
     Dates: start: 20131015
  2. LOMUSTINE [Suspect]
     Indication: PRODUCT USED FOR UNKNOWN INDICATION
     Route: 065
  3. FRAGMIN [Suspect]
     Indication: PRODUCT USED FOR UNKNOWN INDICATION
     Route: 065
  4. TEMOZOLOMIDE [Concomitant]
     Indication: PRODUCT USED FOR UNKNOWN INDICATION
     Dosage: FREQUENCY: DAILY
     Route: 065
  5. DIVALPROEX SODIUM [Concomitant]
     Indication: PRODUCT USED FOR UNKNOWN INDICATION
     Route: 065
  6. CIPRALEX [Concomitant]
     Indication: PRODUCT USED FOR UNKNOWN INDICATION
     Route: 065
  7. ONDANSETRON [Concomitant]
     Indication: PRODUCT USED FOR UNKNOWN INDICATION

REACTIONS (8)
  - Pulmonary thrombosis [Unknown]
  - Platelet count decreased [Unknown]
  - Convulsion [Unknown]
  - Epistaxis [Unknown]
  - Thrombosis [Not Recovered/Not Resolved]
  - Fall [Unknown]
  - Asthenia [Unknown]
  - Disease progression [Unknown]
